FAERS Safety Report 9109209 (Version 2)
Quarter: 2013Q1

REPORT INFORMATION
  Report Type: Report from Study
  Country: US (occurrence: US)
  Receive Date: 20130222
  Receipt Date: 20130308
  Transmission Date: 20140127
  Serious: Yes (Hospitalization)
  Sender: FDA-Public Use
  Company Number: US-PFIZER INC-2013059414

PATIENT
  Age: 51 Year
  Sex: Male

DRUGS (6)
  1. CARBOPLATIN [Suspect]
     Indication: HEAD AND NECK CANCER
     Dosage: UNK
     Dates: start: 20120112, end: 20130131
  2. CARBOPLATIN [Suspect]
     Indication: SQUAMOUS CELL CARCINOMA
  3. TEMSIROLIMUS [Suspect]
     Indication: HEAD AND NECK CANCER
     Dosage: UNK
     Dates: start: 20120112, end: 20121220
  4. TEMSIROLIMUS [Suspect]
     Indication: SQUAMOUS CELL CARCINOMA
  5. TAXOL [Suspect]
     Indication: HEAD AND NECK CANCER
     Dosage: UNK
     Dates: start: 20120112, end: 20130131
  6. TAXOL [Suspect]
     Indication: SQUAMOUS CELL CARCINOMA

REACTIONS (1)
  - Pneumonia [Unknown]
